FAERS Safety Report 26128594 (Version 1)
Quarter: 2025Q4

REPORT INFORMATION
  Report Type: Other
  Country: GB (occurrence: GB)
  Receive Date: 20251207
  Receipt Date: 20251207
  Transmission Date: 20260118
  Serious: Yes (Other)
  Sender: MACLEODS
  Company Number: None

PATIENT

DRUGS (4)
  1. ESOMEPRAZOLE [Suspect]
     Active Substance: ESOMEPRAZOLE
     Indication: Product used for unknown indication
     Route: 065
     Dates: start: 20251121
  2. ESOMEPRAZOLE MAGNESIUM\NAPROXEN [Suspect]
     Active Substance: ESOMEPRAZOLE MAGNESIUM\NAPROXEN
     Indication: Ill-defined disorder
     Route: 065
     Dates: start: 20251121
  3. METOLAZONE [Concomitant]
     Active Substance: METOLAZONE
     Indication: Ill-defined disorder
     Route: 065
     Dates: start: 20250910, end: 20251008
  4. Sando-K [Concomitant]
     Indication: Ill-defined disorder
     Dosage: 24 MMOL
     Route: 065
     Dates: start: 20251002, end: 20251030

REACTIONS (1)
  - Haemorrhage [Recovered/Resolved]
